FAERS Safety Report 18973828 (Version 1)
Quarter: 2021Q1

REPORT INFORMATION
  Report Type: Report from Study
  Country: US (occurrence: US)
  Receive Date: 20210305
  Receipt Date: 20210305
  Transmission Date: 20210420
  Serious: No
  Sender: FDA-Public Use
  Company Number: NVSC2021US046926

PATIENT
  Age: 50 Year
  Sex: Female

DRUGS (1)
  1. MAYZENT [Suspect]
     Active Substance: SIPONIMOD
     Indication: MULTIPLE SCLEROSIS
     Dosage: 2 MG, QD
     Route: 048
     Dates: start: 20210220, end: 20210226

REACTIONS (4)
  - Asthenia [Unknown]
  - Vision blurred [Unknown]
  - Aphasia [Unknown]
  - Tremor [Unknown]

NARRATIVE: CASE EVENT DATE: 20210226
